FAERS Safety Report 8496643-9 (Version None)
Quarter: 2012Q3

REPORT INFORMATION
  Report Type: 
  Country: None (occurrence: None)
  Receive Date: 20120709
  Receipt Date: 20120625
  Transmission Date: 20120928
  Serious: Yes (Hospitalization)
  Sender: FDA-Public Use
  Company Number: IT-NOVEN-12IT004909

PATIENT
  Sex: Female

DRUGS (3)
  1. UNKNOWN [Concomitant]
  2. PAROXETINE [Suspect]
     Indication: ABNORMAL BEHAVIOUR
     Dosage: 20 MG, QD
     Route: 048
     Dates: start: 20111202, end: 20120107
  3. LAMICTAL [Suspect]
     Indication: ABNORMAL BEHAVIOUR
     Dosage: 100 MG, QD
     Route: 048
     Dates: start: 20111202, end: 20120107

REACTIONS (4)
  - LEUKOCYTOSIS [None]
  - ERYTHEMA [None]
  - LYMPHADENOPATHY [None]
  - DRUG RASH WITH EOSINOPHILIA AND SYSTEMIC SYMPTOMS [None]
